FAERS Safety Report 10228925 (Version 1)
Quarter: 2014Q2

REPORT INFORMATION
  Report Type: Spontaneous
  Country: US (occurrence: US)
  Receive Date: 20140610
  Receipt Date: 20140610
  Transmission Date: 20141212
  Serious: Yes (Hospitalization)
  Sender: FDA-Public Use
  Company Number: US-GLAXOSMITHKLINE-A1075488A

PATIENT
  Sex: Male

DRUGS (5)
  1. ADVAIR [Suspect]
     Indication: CHRONIC OBSTRUCTIVE PULMONARY DISEASE
     Dosage: 1PUFF TWICE PER DAY
     Route: 055
  2. ALBUTEROL SOLUTION [Concomitant]
  3. IPRATROPIUM [Concomitant]
  4. HEART MEDICATION [Concomitant]
  5. UNKNOWN MEDICATION [Concomitant]

REACTIONS (7)
  - Heart valve replacement [Unknown]
  - Optic ischaemic neuropathy [Unknown]
  - Blindness [Unknown]
  - Dementia [Unknown]
  - Depression [Unknown]
  - Haemoglobin decreased [Unknown]
  - Procedural complication [Unknown]
